FAERS Safety Report 13015307 (Version 1)
Quarter: 2016Q4

REPORT INFORMATION
  Report Type: Spontaneous
  Country: US (occurrence: US)
  Receive Date: 20161211
  Receipt Date: 20161211
  Transmission Date: 20170207
  Serious: No
  Sender: FDA-Public Use
  Company Number: US-009507513-1611USA013046

PATIENT
  Age: 62 Year
  Sex: Female

DRUGS (1)
  1. ZEPATIER [Suspect]
     Active Substance: ELBASVIR\GRAZOPREVIR
     Indication: HEPATITIS C
     Dosage: STRENGTH 50/100 (UNIT NOT PROVIDED), ONCE DAILY (DOSE UNKNOWN)
     Route: 048
     Dates: start: 20161016

REACTIONS (3)
  - Oedema peripheral [Unknown]
  - Alopecia [Unknown]
  - Weight increased [Unknown]

NARRATIVE: CASE EVENT DATE: 20161016
